FAERS Safety Report 7170230-7 (Version None)
Quarter: 2010Q4

REPORT INFORMATION
  Report Type: 
  Country: None (occurrence: None)
  Receive Date: 20101217
  Receipt Date: 20101203
  Transmission Date: 20110411
  Serious: No
  Sender: FDA-Public Use
  Company Number: US-PFIZER INC-2010164138

PATIENT
  Sex: Male

DRUGS (1)
  1. DEPO-ESTRADIOL [Suspect]
     Indication: OFF LABEL USE
     Dosage: UNK

REACTIONS (3)
  - FACIAL PAIN [None]
  - FATIGUE [None]
  - MYALGIA [None]
